FAERS Safety Report 24553877 (Version 1)
Quarter: 2024Q4

REPORT INFORMATION
  Report Type: Report from Study
  Country: US (occurrence: US)
  Receive Date: 20241028
  Receipt Date: 20241028
  Transmission Date: 20250115
  Serious: No
  Sender: ROCHE
  Company Number: US-ROCHE-2091993

PATIENT
  Age: 64 Year
  Sex: Female
  Weight: 71.63 kg

DRUGS (16)
  1. NUTROPIN AQ [Suspect]
     Active Substance: SOMATROPIN
     Indication: Growth hormone deficiency
     Route: 058
     Dates: start: 2000
  2. NUTROPIN AQ [Suspect]
     Active Substance: SOMATROPIN
     Indication: Hypothyroidism
     Dosage: 7 INJECTIONS/WEEK
     Route: 058
     Dates: start: 2000
  3. NUTROPIN AQ [Suspect]
     Active Substance: SOMATROPIN
     Route: 058
  4. NUTROPIN AQ [Suspect]
     Active Substance: SOMATROPIN
     Route: 058
  5. NUTROPIN AQ [Suspect]
     Active Substance: SOMATROPIN
     Dosage: 20 MG AUTO PEN
     Route: 058
  6. ESTRADIOL [Concomitant]
     Active Substance: ESTRADIOL
  7. FML [Concomitant]
     Active Substance: FLUOROMETHOLONE
     Dosage: 1 DROP LEFT EYE, QID
  8. POLYETHYLENE GLYCOL [Concomitant]
     Active Substance: POLYETHYLENE GLYCOL
     Route: 048
  9. PRASTERONE [Concomitant]
     Active Substance: PRASTERONE
     Dosage: TO SKIN
     Route: 061
  10. PRASTERONE [Concomitant]
     Active Substance: PRASTERONE
     Dosage: 40 MG/G
     Route: 061
  11. VITAMIN D3 [Concomitant]
     Active Substance: CHOLECALCIFEROL
     Dosage: 2000 UNIT, AT NIGHT
     Route: 048
  12. ESTRING [Concomitant]
     Active Substance: ESTRADIOL
     Dosage: EVERY 90 DAYS
  13. LIOTHYRONINE SODIUM [Concomitant]
     Active Substance: LIOTHYRONINE SODIUM
     Route: 048
  14. PRAVASTATIN [Concomitant]
     Active Substance: PRAVASTATIN
     Route: 048
  15. LEVOTHYROXINE [Concomitant]
     Active Substance: LEVOTHYROXINE
     Dosage: ON AN EMPTY STOMACH IN MORNING
     Route: 048
  16. MORPHINE [Concomitant]
     Active Substance: MORPHINE

REACTIONS (63)
  - Osteoporosis [Unknown]
  - Metabolic syndrome [Not Recovered/Not Resolved]
  - Weight increased [Not Recovered/Not Resolved]
  - Menopausal symptoms [Not Recovered/Not Resolved]
  - Hot flush [Not Recovered/Not Resolved]
  - Fatigue [Unknown]
  - Blood thyroid stimulating hormone decreased [Unknown]
  - Constipation [Unknown]
  - Arthralgia [Unknown]
  - Back pain [Unknown]
  - Myalgia [Unknown]
  - Dysphonia [Unknown]
  - Sleep disorder [Unknown]
  - Vision blurred [Unknown]
  - Pollakiuria [Unknown]
  - Temperature intolerance [Unknown]
  - Abdominal pain [Unknown]
  - Chest pain [Unknown]
  - Tinnitus [Unknown]
  - Dizziness [Unknown]
  - Joint stiffness [Unknown]
  - Oedema peripheral [Unknown]
  - Rhinorrhoea [Unknown]
  - Abdominal distension [Unknown]
  - Toothache [Unknown]
  - Feeling cold [Unknown]
  - Colitis [Unknown]
  - Emphysema [Unknown]
  - Thyroid mass [Unknown]
  - Eye disorder [Unknown]
  - Bronchitis chronic [Unknown]
  - Sinusitis [Unknown]
  - Pharyngitis [Unknown]
  - Stress [Unknown]
  - Onychoclasis [Unknown]
  - Thirst [Unknown]
  - Increased appetite [Unknown]
  - Dry skin [Unknown]
  - Weight decreased [Unknown]
  - Accident [Unknown]
  - Hypopituitarism [Unknown]
  - Spinal pain [Unknown]
  - Chest injury [Unknown]
  - Peripheral swelling [Unknown]
  - Eyelid disorder [Unknown]
  - Sleep apnoea syndrome [Unknown]
  - Gastrointestinal disorder [Unknown]
  - Respiratory disorder [Unknown]
  - Insulin-like growth factor increased [Unknown]
  - Gastrointestinal motility disorder [Unknown]
  - Blood cholesterol increased [Unknown]
  - Ill-defined disorder [Unknown]
  - Blood bilirubin increased [Unknown]
  - Pelvic inflammatory disease [Unknown]
  - Illness [Unknown]
  - Liver disorder [Unknown]
  - Liver function test increased [Unknown]
  - Bone pain [Unknown]
  - Lung disorder [Unknown]
  - Ovarian cyst [Unknown]
  - Positive airway pressure therapy [Unknown]
  - Gastrointestinal microorganism overgrowth [Unknown]
  - Off label use [Unknown]

NARRATIVE: CASE EVENT DATE: 20121213
